FAERS Safety Report 8124422-0 (Version None)
Quarter: 2012Q1

REPORT INFORMATION
  Report Type: 
  Country: None (occurrence: None)
  Receive Date: 20120209
  Receipt Date: 20120206
  Transmission Date: 20120608
  Serious: Yes (Other)
  Sender: FDA-Public Use
  Company Number: US-BAYER-2012-012190

PATIENT
  Sex: Female

DRUGS (4)
  1. AVELOX [Suspect]
     Indication: RESPIRATORY TRACT INFECTION
  2. SUPRAX [Suspect]
  3. ALBUTEROL [Suspect]
     Indication: RESPIRATORY TRACT INFECTION
     Route: 055
  4. DULERA INHALATOR [Suspect]
     Route: 055

REACTIONS (1)
  - CANDIDIASIS [None]
